FAERS Safety Report 9692563 (Version 1)
Quarter: 2013Q4

REPORT INFORMATION
  Report Type: Spontaneous
  Country: GR (occurrence: GR)
  Receive Date: 20131118
  Receipt Date: 20131118
  Transmission Date: 20140711
  Serious: Yes (Other)
  Sender: FDA-Public Use
  Company Number: GR-ROCHE-1303014

PATIENT
  Sex: Male

DRUGS (2)
  1. XELODA [Suspect]
     Indication: COLON CANCER STAGE II
     Route: 065
  2. OXALIPLATIN [Suspect]
     Indication: COLON CANCER STAGE II
     Route: 065

REACTIONS (1)
  - Pulmonary oedema [Unknown]
